FAERS Safety Report 9728119 (Version 1)
Quarter: 2013Q4

REPORT INFORMATION
  Report Type: Report from Study
  Country: CA (occurrence: CA)
  Receive Date: 20131204
  Receipt Date: 20131204
  Transmission Date: 20140711
  Serious: Yes (Other)
  Sender: FDA-Public Use
  Company Number: CA-ROCHE-1311023

PATIENT
  Age: 60 Year
  Sex: Male
  Weight: 68 kg

DRUGS (11)
  1. RITUXAN [Suspect]
     Indication: RHEUMATOID ARTHRITIS
     Route: 042
     Dates: start: 20081216
  2. ACETAMINOPHEN [Concomitant]
     Route: 048
     Dates: start: 20081216
  3. METHYLPREDNISOLONE [Concomitant]
     Route: 042
     Dates: start: 20081216
  4. METHOTREXATE [Concomitant]
     Route: 048
  5. FOLINIC ACID [Concomitant]
     Dosage: 12 HOURS AFTER METHOTREXATE
     Route: 048
  6. NEXIUM [Concomitant]
     Route: 065
  7. COVERSYL [Concomitant]
     Route: 065
  8. AMLODIPINE [Concomitant]
     Route: 065
  9. LIPITOR [Concomitant]
     Route: 065
  10. FISH OIL [Concomitant]
     Route: 065
  11. VITAMIN C [Concomitant]
     Route: 065

REACTIONS (5)
  - Spinal disorder [Unknown]
  - Nausea [Recovering/Resolving]
  - Pancreatic enzymes increased [Unknown]
  - Muscle strain [Unknown]
  - Rheumatoid arthritis [Not Recovered/Not Resolved]
